FAERS Safety Report 8219678-X (Version None)
Quarter: 2012Q1

REPORT INFORMATION
  Report Type: 
  Country: None (occurrence: None)
  Receive Date: 20120319
  Receipt Date: 20120305
  Transmission Date: 20120608
  Serious: Yes (Hospitalization)
  Sender: FDA-Public Use
  Company Number: CA-ROCHE-1047135

PATIENT
  Sex: Female
  Weight: 76.8 kg

DRUGS (3)
  1. RANIBIZUMAB [Suspect]
     Indication: DIABETIC RETINAL OEDEMA
     Route: 050
     Dates: start: 20090108, end: 20090108
  2. RANIBIZUMAB [Suspect]
     Route: 050
     Dates: start: 20110829, end: 20110829
  3. ROSIGLITAZONE MALEATE [Suspect]
     Indication: DIABETES MELLITUS
     Route: 048
     Dates: start: 20070401, end: 20120110

REACTIONS (1)
  - TRANSIENT ISCHAEMIC ATTACK [None]
